FAERS Safety Report 7534785-2 (Version None)
Quarter: 2011Q2

REPORT INFORMATION
  Report Type: 
  Country: None (occurrence: None)
  Receive Date: 20110609
  Receipt Date: 20080815
  Transmission Date: 20111010
  Serious: Yes (Hospitalization, Other)
  Sender: FDA-Public Use
  Company Number: PHHY2008GB13654

PATIENT
  Sex: Male

DRUGS (1)
  1. CLOZAPINE [Suspect]
     Indication: SCHIZOPHRENIA
     Dosage: UNK
     Dates: start: 20050815

REACTIONS (8)
  - APPENDICITIS [None]
  - PARALYSIS [None]
  - MENTAL DISORDER [None]
  - INTESTINAL OBSTRUCTION [None]
  - FAECAL VOMITING [None]
  - PAIN [None]
  - DIARRHOEA [None]
  - CONSTIPATION [None]
